FAERS Safety Report 5963739-2 (Version None)
Quarter: 2008Q4

REPORT INFORMATION
  Report Type: 
  Country: None (occurrence: None)
  Receive Date: 20081120
  Receipt Date: 20081107
  Transmission Date: 20090506
  Serious: Yes (Death, Life-Threatening, Hospitalization, Other)
  Sender: FDA-Public Use
  Company Number: CLOF-10507

PATIENT
  Age: 19 Year
  Sex: Male
  Weight: 75 kg

DRUGS (41)
  1. CLOFARABINE (CLOFARABINE) [Suspect]
     Indication: ACUTE LYMPHOCYTIC LEUKAEMIA
     Dosage: 78 MG, QDX5, INTRAVENOUS
     Route: 042
     Dates: start: 20070411
  2. ETOPOSIDE [Suspect]
     Indication: ACUTE LYMPHOCYTIC LEUKAEMIA
     Dosage: 196 MG, QDX5, INTRAVENOUS
     Route: 042
     Dates: start: 20070411
  3. CYCLOPHOSPHAMIDE [Suspect]
     Indication: ACUTE LYMPHOCYTIC LEUKAEMIA
     Dosage: 860 MG, QDX5, INTRAVENOUS
     Route: 042
     Dates: start: 20070411
  4. ALLOPURINOL [Suspect]
  5. AMPHETAMINE AND DEXTROAMPHETAMINE SALTS [Concomitant]
  6. DAPSONE [Concomitant]
  7. DOCUSATE (DOCUSATE) [Concomitant]
  8. ESCITALOPRAM [Concomitant]
  9. LABETALOL HCL [Concomitant]
  10. RANITIDINE [Concomitant]
  11. MAGNESIUM HYDROXIDE TAB [Concomitant]
  12. CALCIUM CARBONATE (CALCIUM CARBONATE) [Concomitant]
  13. LANSOPRAZOLE [Concomitant]
  14. MAGNESIUM SULFATE [Concomitant]
  15. MESNA [Concomitant]
  16. SCOPOLAMINE [Concomitant]
  17. DIPHENHYDRAMINE HCL [Concomitant]
  18. METOCLOPRAMIDE [Concomitant]
  19. POLYETHYLENE GLYCOL (MACROGOL) [Concomitant]
  20. ZOLPIDEM TARTRATE [Concomitant]
  21. AMLODIPINE [Concomitant]
  22. FILGRASTIM (FILGRAMTIM) [Concomitant]
  23. FLUCONAZOLE [Concomitant]
  24. HEPARIN [Concomitant]
  25. HYDROMORPHONE HCL [Concomitant]
  26. MULTIVITAMIN WITH MINERALS [Concomitant]
  27. ONDANSETRON (CONDANSETRON) [Concomitant]
  28. OXYCODONE HCL [Concomitant]
  29. ACYCLOVIR [Concomitant]
  30. CEFTAZIDIME [Concomitant]
  31. SELENIOUS ACID (SELENIOUS ACID) [Concomitant]
  32. URSODIOL [Concomitant]
  33. ESOMEPRAZOLE MAGNESIUM [Concomitant]
  34. CENTAMICIN [Concomitant]
  35. HALOPERIDOL [Concomitant]
  36. LEVETIRACETAM [Concomitant]
  37. LORAZEPAM [Concomitant]
  38. MEROPENEM (MEROPENEM) [Concomitant]
  39. PROPRANOLOL [Concomitant]
  40. SCOPOLAMINE [Concomitant]
  41. TIGECYCLINE (TIGECYCLINE) [Concomitant]

REACTIONS (57)
  - ALANINE AMINOTRANSFERASE INCREASED [None]
  - ATELECTASIS [None]
  - BILIRUBIN CONJUGATED INCREASED [None]
  - BLOOD ALKALINE PHOSPHATASE INCREASED [None]
  - BLOOD BICARBONATE INCREASED [None]
  - BLOOD CHLORIDE DECREASED [None]
  - BLOOD CULTURE POSITIVE [None]
  - BLOOD MAGNESIUM DECREASED [None]
  - BLOOD OSMOLARITY INCREASED [None]
  - BLOOD PHOSPHORUS INCREASED [None]
  - BLOOD POTASSIUM DECREASED [None]
  - BLOOD SODIUM DECREASED [None]
  - BLOOD UREA DECREASED [None]
  - BLOOD URIC ACID INCREASED [None]
  - BONE MARROW FAILURE [None]
  - BRONCHOPULMONARY ASPERGILLOSIS [None]
  - CALCIUM IONISED DECREASED [None]
  - CARDIOMEGALY [None]
  - CHOLELITHIASIS [None]
  - CNS VENTRICULITIS [None]
  - COAGULOPATHY [None]
  - CONVULSION [None]
  - DEPRESSED LEVEL OF CONSCIOUSNESS [None]
  - DISEASE PROGRESSION [None]
  - ENCEPHALOPATHY [None]
  - FALL [None]
  - FIBRIN D DIMER INCREASED [None]
  - GAMMA-GLUTAMYLTRANSFERASE INCREASED [None]
  - HAEMATOCHEZIA [None]
  - HAEMATOCRIT DECREASED [None]
  - HEADACHE [None]
  - HYDROCEPHALUS [None]
  - HYPERBILIRUBINAEMIA [None]
  - HYPERNATRAEMIA [None]
  - HYPOPHAGIA [None]
  - HYPOPHOSPHATAEMIA [None]
  - HYPOXIA [None]
  - INTRACRANIAL PRESSURE INCREASED [None]
  - LOBAR PNEUMONIA [None]
  - LUNG NEOPLASM [None]
  - LYMPHADENOPATHY [None]
  - MASTOIDITIS [None]
  - MENINGITIS BACTERIAL [None]
  - MENTAL STATUS CHANGES [None]
  - NEUTROPENIA [None]
  - NEUTROPENIC INFECTION [None]
  - PANCYTOPENIA [None]
  - PLATELET COUNT DECREASED [None]
  - PLEURAL EFFUSION [None]
  - POSTURING [None]
  - PULMONARY OEDEMA [None]
  - RESPIRATORY DISTRESS [None]
  - RHINORRHOEA [None]
  - SALIVARY HYPERSECRETION [None]
  - STAPHYLOCOCCAL INFECTION [None]
  - VENTRICULAR TACHYCARDIA [None]
  - WHITE BLOOD CELL COUNT DECREASED [None]
